FAERS Safety Report 6912880-6 (Version None)
Quarter: 2010Q3

REPORT INFORMATION
  Report Type: 
  Country: None (occurrence: None)
  Receive Date: 20100806
  Receipt Date: 20090306
  Transmission Date: 20110219
  Serious: Yes (Other)
  Sender: FDA-Public Use
  Company Number: US-PFIZER INC-2009160864

PATIENT
  Sex: Male

DRUGS (2)
  1. GLUCOTROL [Suspect]
  2. SITAGLIPTIN [Suspect]

REACTIONS (1)
  - BLOOD GLUCOSE DECREASED [None]
